FAERS Safety Report 17184886 (Version 1)
Quarter: 2019Q4

REPORT INFORMATION
  Report Type: Spontaneous
  Country: US (occurrence: US)
  Receive Date: 20191219
  Receipt Date: 20191219
  Transmission Date: 20200122
  Serious: No
  Sender: FDA-Public Use
  Company Number: None

PATIENT
  Age: 38 Year
  Sex: Male
  Weight: 88.65 kg

DRUGS (1)
  1. ISOVUE 300 [Suspect]
     Active Substance: IOPAMIDOL
     Route: 040

REACTIONS (4)
  - Feeling abnormal [None]
  - Urticaria [None]
  - Swelling face [None]
  - Heart rate increased [None]

NARRATIVE: CASE EVENT DATE: 20191218
